FAERS Safety Report 20700623 (Version 1)
Quarter: 2022Q2

REPORT INFORMATION
  Report Type: Spontaneous
  Country: CA (occurrence: CA)
  Receive Date: 20220412
  Receipt Date: 20220412
  Transmission Date: 20220721
  Serious: Yes (Other)
  Sender: FDA-Public Use
  Company Number: CA-Fresenius Kabi-FK202204215

PATIENT
  Age: 56 Year
  Sex: Female

DRUGS (56)
  1. MILRINONE [Suspect]
     Active Substance: MILRINONE
     Indication: Cardiac failure
     Route: 042
  2. PHENOBARBITAL [Suspect]
     Active Substance: PHENOBARBITAL
     Indication: Myoclonus
     Dosage: STAT DOSE
     Route: 058
  3. PHENOBARBITAL [Suspect]
     Active Substance: PHENOBARBITAL
     Dosage: AT BEDTIME
     Route: 058
  4. DIGOXIN [Concomitant]
     Active Substance: DIGOXIN
     Indication: Product used for unknown indication
     Route: 048
  5. APIXABAN [Concomitant]
     Active Substance: APIXABAN
     Indication: Product used for unknown indication
     Route: 048
  6. FUROSEMIDE [Concomitant]
     Active Substance: FUROSEMIDE
     Indication: Product used for unknown indication
     Dosage: AT 09:00 AND AT 16:00
     Route: 042
  7. FUROSEMIDE [Concomitant]
     Active Substance: FUROSEMIDE
     Route: 042
  8. FUROSEMIDE [Concomitant]
     Active Substance: FUROSEMIDE
     Route: 042
  9. FUROSEMIDE [Concomitant]
     Active Substance: FUROSEMIDE
     Route: 042
  10. SPIRONOLACTONE [Concomitant]
     Active Substance: SPIRONOLACTONE
     Indication: Product used for unknown indication
     Route: 048
  11. METOLAZONE [Concomitant]
     Active Substance: METOLAZONE
     Indication: Product used for unknown indication
     Route: 048
  12. POTASSIUM CHLORIDE [Concomitant]
     Active Substance: POTASSIUM CHLORIDE
     Indication: Product used for unknown indication
     Route: 048
  13. MORPHINE [Concomitant]
     Active Substance: MORPHINE
     Indication: Pain
     Route: 058
  14. MORPHINE [Concomitant]
     Active Substance: MORPHINE
     Indication: Dyspnoea
     Route: 058
  15. MORPHINE [Concomitant]
     Active Substance: MORPHINE
     Indication: Abdominal pain
     Dosage: TITRATED WITH FREQUENT INCREASES TO 1.5 TO 2 MG
     Route: 058
  16. MORPHINE [Concomitant]
     Active Substance: MORPHINE
     Dosage: REDUCED FROM 2 MG TO 1.5 MG
     Route: 058
  17. MORPHINE [Concomitant]
     Active Substance: MORPHINE
     Dosage: INCREASED FROM 1.5 MG TO 2 MG
     Route: 058
  18. PREGABALIN [Concomitant]
     Active Substance: PREGABALIN
     Indication: Product used for unknown indication
     Dosage: QHS
     Route: 048
  19. PREGABALIN [Concomitant]
     Active Substance: PREGABALIN
     Dosage: WEANED AND STOPPED
     Route: 065
  20. INSULIN GLARGINE [Concomitant]
     Active Substance: INSULIN GLARGINE
     Indication: Product used for unknown indication
     Dosage: TITRATED TO BLOOD GLUCOSE MEASUREMENT AND ORAL INTAKE WITH CONSULTATION BY ENDOCRINOLOGY
     Route: 058
  21. INSULIN ASPART [Concomitant]
     Active Substance: INSULIN ASPART
     Indication: Product used for unknown indication
     Dosage: TITRATED TO BLOOD GLUCOSE MEASUREMENT AND ORAL INTAKE WITH CONSULTATION BY ENDOCRINOLOGY
     Route: 058
  22. PANTOPRAZOLE [Concomitant]
     Active Substance: PANTOPRAZOLE
     Indication: Product used for unknown indication
     Route: 065
  23. CITALOPRAM [Concomitant]
     Active Substance: CITALOPRAM HYDROBROMIDE
     Indication: Product used for unknown indication
     Route: 065
  24. CITALOPRAM [Concomitant]
     Active Substance: CITALOPRAM HYDROBROMIDE
     Dosage: TAPERED TO 10 MG, THEN STOPPED.
     Route: 065
  25. METOCLOPRAMIDE [Concomitant]
     Active Substance: METOCLOPRAMIDE
     Indication: Product used for unknown indication
     Route: 065
  26. FLUTICASONE PROPIONATE\SALMETEROL XINAFOATE [Concomitant]
     Active Substance: FLUTICASONE PROPIONATE\SALMETEROL XINAFOATE
     Indication: Product used for unknown indication
     Route: 065
  27. LACTULOSE [Concomitant]
     Active Substance: LACTULOSE
     Indication: Product used for unknown indication
     Route: 065
  28. ACETAMINOPHEN [Concomitant]
     Active Substance: ACETAMINOPHEN
     Indication: Product used for unknown indication
     Route: 065
  29. BISACODYL [Concomitant]
     Active Substance: BISACODYL
     Indication: Product used for unknown indication
     Route: 065
  30. NITROGLYCERIN [Concomitant]
     Active Substance: NITROGLYCERIN
     Indication: Product used for unknown indication
     Route: 065
  31. MIDAZOLAM [Concomitant]
     Active Substance: MIDAZOLAM
     Indication: Dyspnoea
     Route: 058
  32. MIDAZOLAM [Concomitant]
     Active Substance: MIDAZOLAM
     Indication: Myoclonus
     Dosage: PRN VIA PATIENT-CONTROLLED CONTINUOUS AMBULATORY DELIVERY DEVICE PUMP WITH NO BASAL INFUSION RATE
     Route: 058
  33. MIDAZOLAM [Concomitant]
     Active Substance: MIDAZOLAM
     Indication: Dyspnoea
     Dosage: PRN VIA PATIENT-CONTROLLED CONTINUOUS AMBULATORY DELIVERY DEVICE PUMP WITH NO BASAL INFUSION RATE. A
     Route: 058
  34. MIDAZOLAM [Concomitant]
     Active Substance: MIDAZOLAM
     Indication: Anxiety
     Dosage: CONTINUOUS INFUSION RATE
     Route: 058
  35. MIDAZOLAM [Concomitant]
     Active Substance: MIDAZOLAM
     Indication: Emotional distress
     Dosage: PRN, BOLUS DOSING
     Route: 058
  36. LORAZEPAM [Concomitant]
     Active Substance: LORAZEPAM
     Indication: Anxiety
     Route: 048
  37. IPRATROPIUM [Concomitant]
     Active Substance: IPRATROPIUM
     Indication: Product used for unknown indication
     Route: 065
  38. POLYETHYLENE GLYCOLS [Concomitant]
     Active Substance: POLYETHYLENE GLYCOLS
     Indication: Product used for unknown indication
     Route: 065
  39. SENNOSIDES A AND B [Concomitant]
     Active Substance: SENNOSIDES A AND B
     Indication: Product used for unknown indication
     Route: 065
  40. METHYLCELLULOSES [Concomitant]
     Active Substance: METHYLCELLULOSES
     Indication: Product used for unknown indication
     Route: 065
  41. PARAFFIN [Concomitant]
     Active Substance: PARAFFIN
     Indication: Dry skin
     Route: 065
  42. HALOPERIDOL [Concomitant]
     Active Substance: HALOPERIDOL
     Indication: Nausea
     Dosage: LOW DOSE
     Route: 065
  43. HALOPERIDOL [Concomitant]
     Active Substance: HALOPERIDOL
     Indication: Gastrooesophageal reflux disease
     Dosage: INCREASED
     Route: 065
  44. BUTYLSCOPOLAMINE BROMIDE [Concomitant]
     Active Substance: BUTYLSCOPOLAMINE BROMIDE
     Indication: Pain
     Route: 065
  45. BUTYLSCOPOLAMINE BROMIDE [Concomitant]
     Active Substance: BUTYLSCOPOLAMINE BROMIDE
     Indication: Gastrointestinal disorder
     Route: 058
  46. BUTYLSCOPOLAMINE BROMIDE [Concomitant]
     Active Substance: BUTYLSCOPOLAMINE BROMIDE
     Indication: Sedative therapy
  47. BUTYLSCOPOLAMINE BROMIDE [Concomitant]
     Active Substance: BUTYLSCOPOLAMINE BROMIDE
     Indication: Increased bronchial secretion
  48. DIMENHYDRINATE [Concomitant]
     Active Substance: DIMENHYDRINATE
     Indication: Nausea
     Route: 065
  49. DIMENHYDRINATE [Concomitant]
     Active Substance: DIMENHYDRINATE
     Indication: Gastrointestinal disorder
  50. SULFAMETHOXAZOLE\TRIMETHOPRIM [Concomitant]
     Active Substance: SULFAMETHOXAZOLE\TRIMETHOPRIM
     Indication: Urinary tract infection
     Route: 065
  51. SULFAMETHOXAZOLE\TRIMETHOPRIM [Concomitant]
     Active Substance: SULFAMETHOXAZOLE\TRIMETHOPRIM
     Indication: Klebsiella infection
  52. LORAZEPAM [Concomitant]
     Active Substance: LORAZEPAM
     Indication: Anxiety
     Route: 060
  53. HYDROMORPHONE [Concomitant]
     Active Substance: HYDROMORPHONE
     Indication: Pain
     Route: 058
  54. HYDROMORPHONE [Concomitant]
     Active Substance: HYDROMORPHONE
     Indication: Dyspnoea
     Dosage: PRN
     Route: 058
  55. HYDROMORPHONE [Concomitant]
     Active Substance: HYDROMORPHONE
     Indication: Coccydynia
     Route: 058
  56. HYDROMORPHONE [Concomitant]
     Active Substance: HYDROMORPHONE
     Route: 058

REACTIONS (2)
  - Rebound effect [Unknown]
  - Drug dependence [Unknown]
